FAERS Safety Report 7822578-8 (Version None)
Quarter: 2011Q4

REPORT INFORMATION
  Report Type: 
  Country: None (occurrence: None)
  Receive Date: 20111018
  Receipt Date: 20111004
  Transmission Date: 20120403
  Serious: Yes (Congenital Anomaly)
  Sender: FDA-Public Use
  Company Number: US-GILEAD-2011-0044716

PATIENT

DRUGS (5)
  1. KALETRA [Concomitant]
     Indication: HIV INFECTION
     Dosage: UNK
     Dates: start: 20090615, end: 20091126
  2. PREZISTA                           /05513801/ [Concomitant]
     Indication: HIV INFECTION
     Dosage: UNK
     Dates: start: 20091126
  3. EMTRICITABINE/TENOFOVIR DISOPROXIL FUMARATE [Suspect]
     Indication: HIV INFECTION
     Dosage: 1 DF, UNK
     Route: 048
     Dates: start: 20091126
  4. COMBIVIR [Concomitant]
     Indication: HIV INFECTION
     Dosage: UNK
     Dates: start: 20090615
  5. FUZEON [Concomitant]
     Indication: HIV INFECTION
     Dosage: UNK
     Dates: start: 20091126, end: 20100105

REACTIONS (1)
  - SMALL FOR DATES BABY [None]
